FAERS Safety Report 6241521-9 (Version None)
Quarter: 2009Q2

REPORT INFORMATION
  Report Type: 
  Country: None (occurrence: None)
  Receive Date: 20090623
  Receipt Date: 20060510
  Transmission Date: 20091009
  Serious: Yes (Life-Threatening, Hospitalization)
  Sender: FDA-Public Use
  Company Number: ES-ROCHE-358168

PATIENT
  Sex: Male
  Weight: 72.6 kg

DRUGS (23)
  1. DACLIZUMAB [Suspect]
     Dosage: BASELINE VISIT. ROUTE AND FORMULATION PER PROTOCOL.
     Route: 042
     Dates: start: 20031121
  2. DACLIZUMAB [Suspect]
     Dosage: FREQUENCY PER PROTOCOL.
     Route: 042
     Dates: start: 20031205
  3. MYCOPHENOLATE MOFETIL [Suspect]
     Route: 048
     Dates: start: 20031121
  4. MYCOPHENOLATE MOFETIL [Suspect]
     Route: 048
     Dates: start: 20031201
  5. MYCOPHENOLATE MOFETIL [Suspect]
     Route: 048
     Dates: start: 20031204
  6. MYCOPHENOLATE MOFETIL [Suspect]
     Route: 048
     Dates: start: 20031209, end: 20031211
  7. MYCOPHENOLATE MOFETIL [Suspect]
     Route: 048
     Dates: start: 20031229
  8. SIROLIMUS [Suspect]
     Route: 048
     Dates: start: 20031121
  9. SIROLIMUS [Suspect]
     Route: 048
     Dates: start: 20031125
  10. SIROLIMUS [Suspect]
     Route: 048
     Dates: start: 20031202
  11. PREDNISONE [Suspect]
     Route: 048
     Dates: start: 20031123
  12. PREDNISONE [Suspect]
     Route: 048
     Dates: start: 20031205
  13. METHYLPREDNISOLONE [Suspect]
     Route: 042
     Dates: start: 20031121
  14. METHYLPREDNISOLONE [Suspect]
     Route: 042
     Dates: start: 20031121
  15. TRIMETHOPRIM + SULFAMETHOXAZOLE [Concomitant]
     Route: 048
     Dates: start: 20031122
  16. AMLODIPINE [Concomitant]
     Route: 048
     Dates: start: 20031201
  17. NYSTATIN [Concomitant]
     Route: 048
     Dates: start: 20031122, end: 20031220
  18. AMOXICILLIN AND CLAVULANATE POTASSIUM [Concomitant]
     Dosage: DRUG NAME: AMOXICILIN/CLAVULANATE
     Route: 048
     Dates: start: 20031219
  19. CEFOXITIN [Concomitant]
     Route: 042
     Dates: start: 20031122, end: 20031125
  20. GANCICLOVIR [Concomitant]
     Route: 042
     Dates: end: 20031103
  21. GANCICLOVIR [Concomitant]
     Route: 042
     Dates: start: 20031122
  22. GANCICLOVIR [Concomitant]
     Route: 042
     Dates: start: 20031123
  23. VALGANCICLOVIR HCL [Concomitant]
     Route: 048
     Dates: start: 20031203

REACTIONS (3)
  - DRUG INEFFECTIVE [None]
  - LEUKOPENIA [None]
  - LYMPHOCELE [None]
